FAERS Safety Report 21140141 (Version 1)
Quarter: 2022Q3

REPORT INFORMATION
  Report Type: Other
  Country: FR (occurrence: FR)
  Receive Date: 20220728
  Receipt Date: 20220728
  Transmission Date: 20221027
  Serious: Yes (Hospitalization)
  Sender: FDA-Public Use
  Company Number: FR-TOLMAR, INC.-21FR026545

PATIENT
  Age: 79 Year
  Sex: Male
  Weight: 90 kg

DRUGS (13)
  1. ELIGARD [Suspect]
     Active Substance: LEUPROLIDE ACETATE
     Indication: Prostate cancer
     Dosage: 22.5 MG, Q 3 MONTH
     Route: 058
     Dates: start: 20180111, end: 20180918
  2. ENZALUTAMIDE [Suspect]
     Active Substance: ENZALUTAMIDE
     Indication: Prostate cancer
     Dosage: UNK UNK, QD
     Route: 048
     Dates: start: 20180111, end: 20180918
  3. LERCANIDIPINE [Concomitant]
     Active Substance: LERCANIDIPINE
     Indication: Ischaemic cardiomyopathy
     Dosage: UNK
     Dates: start: 2009
  4. KARDEGIC [Concomitant]
     Active Substance: ASPIRIN DL-LYSINE
     Indication: Ischaemic cardiomyopathy
     Dosage: UNK
     Dates: start: 2009
  5. BISOPROLOL [Concomitant]
     Active Substance: BISOPROLOL
     Indication: Ischaemic cardiomyopathy
     Dosage: UNK
     Dates: start: 2009
  6. NEUPRO [Concomitant]
     Active Substance: ROTIGOTINE
     Indication: Stiff leg syndrome
     Dosage: UNK
     Dates: start: 2006
  7. NITROGLYCERIN [Concomitant]
     Active Substance: NITROGLYCERIN
     Indication: Ischaemic cardiomyopathy
     Dosage: UNK
     Dates: start: 2009
  8. FENOFIBRATE [Concomitant]
     Active Substance: FENOFIBRATE
     Indication: Dyslipidaemia
     Dosage: UNK
     Dates: start: 2009
  9. LANSOPRAZOLE [Concomitant]
     Active Substance: LANSOPRAZOLE
     Indication: Prophylaxis
     Dosage: UNK
  10. IRBESARTAN [Concomitant]
     Active Substance: IRBESARTAN
     Indication: Ischaemic cardiomyopathy
     Dosage: UNK
     Dates: start: 2009
  11. GABAPENTIN [Concomitant]
     Active Substance: GABAPENTIN
     Indication: Stiff leg syndrome
     Dosage: UNK
     Dates: start: 2006
  12. CHOLECALCIFEROL [Concomitant]
     Active Substance: CHOLECALCIFEROL
     Indication: Product used for unknown indication
     Dosage: UNK
  13. APIXABAN [Concomitant]
     Active Substance: APIXABAN
     Indication: Splenic infarction
     Dosage: UNK
     Dates: start: 20210304

REACTIONS (1)
  - Splenic infarction [Recovered/Resolved]

NARRATIVE: CASE EVENT DATE: 20210317
